FAERS Safety Report 6977082-6 (Version None)
Quarter: 2010Q3

REPORT INFORMATION
  Report Type: 
  Country: None (occurrence: None)
  Receive Date: 20100910
  Receipt Date: 20100831
  Transmission Date: 20110219
  Serious: Yes (Hospitalization)
  Sender: FDA-Public Use
  Company Number: JP-MERCK-1007USA00774

PATIENT
  Age: 58 Year
  Sex: Female

DRUGS (8)
  1. JANUVIA [Suspect]
     Indication: TYPE 2 DIABETES MELLITUS
     Route: 048
     Dates: start: 20100130, end: 20100510
  2. LEXOTAN [Concomitant]
     Route: 065
     Dates: start: 19990101
  3. LOXONIN [Suspect]
     Indication: LUMBAR SPINAL STENOSIS
     Route: 048
     Dates: start: 20100101, end: 20100510
  4. VOLTAREN [Suspect]
     Indication: LUMBAR SPINAL STENOSIS
     Route: 048
     Dates: start: 20100101, end: 20100510
  5. METFORMIN HCL [Concomitant]
     Route: 065
  6. AMARYL [Concomitant]
     Route: 065
  7. BENZALIN [Concomitant]
     Route: 065
  8. TAKEPRON [Concomitant]
     Route: 065

REACTIONS (2)
  - CARDIAC FAILURE [None]
  - RENAL FAILURE [None]
